FAERS Safety Report 9216816 (Version 2)
Quarter: 2013Q2

REPORT INFORMATION
  Report Type: Spontaneous
  Country: US (occurrence: US)
  Receive Date: 20130408
  Receipt Date: 20130415
  Transmission Date: 20140414
  Serious: Yes (Hospitalization)
  Sender: FDA-Public Use
  Company Number: US-PFIZER INC-2013109804

PATIENT
  Age: 70 Year
  Sex: Female
  Weight: 45.4 kg

DRUGS (3)
  1. PROTONIX [Suspect]
     Indication: GASTROOESOPHAGEAL REFLUX DISEASE
     Dosage: 40 MG, 1X/DAY
  2. PROTONIX [Suspect]
     Indication: HIATUS HERNIA
  3. PREMARIN [Suspect]
     Indication: HYSTERECTOMY
     Dosage: 0.3 MG, 1X/DAY

REACTIONS (2)
  - Colitis [Unknown]
  - Irritable bowel syndrome [Unknown]
